FAERS Safety Report 10221073 (Version 1)
Quarter: 2014Q2

REPORT INFORMATION
  Report Type: Report from Study
  Country: US (occurrence: US)
  Receive Date: 20140606
  Receipt Date: 20140606
  Transmission Date: 20141212
  Serious: Yes (Other)
  Sender: FDA-Public Use
  Company Number: US-ROCHE-1339096

PATIENT
  Age: 61 Year
  Sex: Female

DRUGS (2)
  1. LUCENTIS [Suspect]
     Indication: AGE-RELATED MACULAR DEGENERATION
     Dosage: ALSO RECEIVED ON 23/MAR/2011, 26/MAY/2011, 25/AUG/2011, 27/OCT/2011, 22/DEC/2011, 26/JAN/2012, 23/FE
     Route: 050
  2. AVASTIN [Suspect]
     Indication: PRODUCT USED FOR UNKNOWN INDICATION
     Dosage: RECIVED ON 22/MAR/2012
     Route: 065

REACTIONS (11)
  - Ocular hyperaemia [Unknown]
  - Macular oedema [Unknown]
  - Drug ineffective [Unknown]
  - Visual acuity reduced [Unknown]
  - Sudden visual loss [Unknown]
  - Malaise [Unknown]
  - Metamorphopsia [Unknown]
  - Dizziness [Unknown]
  - Visual impairment [Unknown]
  - Vision blurred [Unknown]
  - Visual impairment [Unknown]
